FAERS Safety Report 5386063-8 (Version None)
Quarter: 2007Q3

REPORT INFORMATION
  Report Type: 
  Country: None (occurrence: None)
  Receive Date: 20070710
  Receipt Date: 20070626
  Transmission Date: 20080115
  Serious: Yes (Other)
  Sender: FDA-Public Use
  Company Number: 07H-163-0312803-00

PATIENT
  Age: 23 Year
  Sex: Female

DRUGS (2)
  1. FENTANYL CITRATE [Suspect]
     Indication: ANALGESIC THERAPY
     Dosage: 20 MCG, NOT REPORTED, SPINAL-EPIDURAL
     Route: 008
  2. BUPIVACAINE [Concomitant]

REACTIONS (2)
  - AREFLEXIA [None]
  - DYSPHAGIA [None]
